FAERS Safety Report 24767538 (Version 1)
Quarter: 2024Q4

REPORT INFORMATION
  Report Type: Spontaneous
  Country: CZ (occurrence: CZ)
  Receive Date: 20241223
  Receipt Date: 20241223
  Transmission Date: 20250115
  Serious: Yes (Life-Threatening, Hospitalization, Disabling, Other)
  Sender: MYLAN
  Company Number: None

PATIENT

DRUGS (1)
  1. TERIFLUNOMIDE [Suspect]
     Active Substance: TERIFLUNOMIDE
     Indication: Product used for unknown indication
     Dosage: 14 MILLIGRAM, QD,(ONE TABLET A DAY,FILM-COATED TABLET)
     Route: 065
     Dates: start: 20240227, end: 20241105

REACTIONS (3)
  - Hilar lymphadenopathy [Recovering/Resolving]
  - Lymphadenopathy mediastinal [Recovering/Resolving]
  - Granulomatous lymphadenitis [Recovering/Resolving]

NARRATIVE: CASE EVENT DATE: 20240905
